FAERS Safety Report 10249062 (Version 1)
Quarter: 2014Q2

REPORT INFORMATION
  Report Type: Spontaneous
  Country: DE (occurrence: None)
  Receive Date: 20140618
  Receipt Date: 20140618
  Transmission Date: 20141212
  Serious: Yes (Other)
  Sender: FDA-Public Use
  Company Number: 2014SEB00005

PATIENT
  Sex: 0

DRUGS (1)
  1. HYDROCORTISONE [Suspect]

REACTIONS (1)
  - Thrombosis [None]
